FAERS Safety Report 6167189-8 (Version None)
Quarter: 2009Q2

REPORT INFORMATION
  Report Type: 
  Country: None (occurrence: None)
  Receive Date: 20090423
  Receipt Date: 20090409
  Transmission Date: 20091009
  Serious: Yes (Disabling)
  Sender: FDA-Public Use
  Company Number: B0570306A

PATIENT
  Age: 49 Year
  Sex: Male

DRUGS (5)
  1. ROPINIROLE HYDROCHLORIDE [Suspect]
     Indication: PARKINSON'S DISEASE
  2. QUETIAPINE [Concomitant]
  3. ENTACAPONE [Concomitant]
  4. CO-CARELDOPA [Concomitant]
  5. CARBAMAZEPINE [Concomitant]

REACTIONS (5)
  - ALCOHOL USE [None]
  - BIPOLAR DISORDER [None]
  - GAMBLING [None]
  - HYPERSEXUALITY [None]
  - INCREASED APPETITE [None]
